FAERS Safety Report 6337859-7 (Version None)
Quarter: 2009Q3

REPORT INFORMATION
  Report Type: 
  Country: None (occurrence: None)
  Receive Date: 20090902
  Receipt Date: 20090827
  Transmission Date: 20100115
  Serious: Yes (Other)
  Sender: FDA-Public Use
  Company Number: B0590462A

PATIENT
  Age: 22 Year
  Sex: Female

DRUGS (1)
  1. ZOVIRAX [Suspect]
     Indication: VARICELLA
     Dosage: 800MG FOUR TIMES PER DAY
     Route: 048
     Dates: start: 20090101, end: 20090101

REACTIONS (4)
  - BURNING SENSATION [None]
  - DERMATITIS BULLOUS [None]
  - OFF LABEL USE [None]
  - PAIN [None]
